FAERS Safety Report 5889686-2 (Version None)
Quarter: 2008Q3

REPORT INFORMATION
  Report Type: 
  Country: None (occurrence: None)
  Receive Date: 20080919
  Receipt Date: 20080911
  Transmission Date: 20090109
  Serious: Yes (Other)
  Sender: FDA-Public Use
  Company Number: US-JNJFOC-20080903207

PATIENT
  Age: 63 Year
  Sex: Male
  Weight: 91.63 kg

DRUGS (10)
  1. TYLENOL (CAPLET) [Suspect]
     Route: 048
  2. TYLENOL (CAPLET) [Suspect]
     Indication: ARTHRITIS
     Route: 048
  3. ASPIRIN [Concomitant]
     Indication: ISCHAEMIC HEART DISEASE PROPHYLAXIS
  4. COREG [Concomitant]
     Indication: CARDIAC DISORDER
  5. DIOVAN [Concomitant]
     Indication: HYPERTENSION
  6. PROZAC [Concomitant]
     Indication: DEPRESSION
  7. LOPID [Concomitant]
     Indication: BLOOD CHOLESTEROL ABNORMAL
  8. METFORMIN HCL [Concomitant]
     Indication: DIABETES MELLITUS
  9. OMEPRAZOLE [Concomitant]
     Indication: GASTROOESOPHAGEAL REFLUX DISEASE
  10. ZOCOR [Concomitant]
     Indication: BLOOD CHOLESTEROL ABNORMAL

REACTIONS (1)
  - HYPERTENSION [None]
